FAERS Safety Report 24209929 (Version 4)
Quarter: 2024Q4

REPORT INFORMATION
  Report Type: Spontaneous
  Country: DE (occurrence: DE)
  Receive Date: 20240814
  Receipt Date: 20241009
  Transmission Date: 20250115
  Serious: Yes (Other)
  Sender: ALIMERA
  Company Number: DE-ALIMERA SCIENCES INC.-DE-A16013-24-000503

PATIENT
  Age: 61 Year
  Sex: Female

DRUGS (2)
  1. ILUVIEN [Suspect]
     Active Substance: FLUOCINOLONE ACETONIDE
     Indication: Chorioretinitis
     Dosage: 0.25 MICROGRAM, QD - RIGHT EYE
     Route: 031
     Dates: start: 20240731, end: 20240731
  2. COSOPT [Concomitant]
     Active Substance: DORZOLAMIDE HYDROCHLORIDE\TIMOLOL MALEATE
     Indication: Borderline glaucoma
     Dosage: 2 DROP, QD - RIGHT EYE
     Route: 031
     Dates: start: 202404

REACTIONS (4)
  - Hypotony of eye [Not Recovered/Not Resolved]
  - Procedural complication [Not Recovered/Not Resolved]
  - Device failure [Not Recovered/Not Resolved]
  - Device dispensing error [Not Recovered/Not Resolved]

NARRATIVE: CASE EVENT DATE: 20240731
